FAERS Safety Report 18685926 (Version 1)
Quarter: 2020Q4

REPORT INFORMATION
  Report Type: Report from Study
  Country: None (occurrence: IL)
  Receive Date: 20201230
  Receipt Date: 20201230
  Transmission Date: 20210114
  Serious: Yes (Hospitalization, Other)
  Sender: FDA-Public Use
  Company Number: IL-ABBVIE-20K-082-3412506-00

PATIENT
  Age: 17 Year
  Sex: Male
  Weight: 62 kg

DRUGS (5)
  1. HUMIRA [Suspect]
     Active Substance: ADALIMUMAB
     Route: 058
     Dates: start: 20181128, end: 20190520
  2. HUMIRA [Suspect]
     Active Substance: ADALIMUMAB
     Indication: CROHN^S DISEASE
     Dosage: INDUCTION
     Route: 058
     Dates: start: 20170428, end: 20170511
  3. HUMIRA [Suspect]
     Active Substance: ADALIMUMAB
     Dosage: INDUCTION
     Route: 058
     Dates: start: 20200611, end: 20200612
  4. HUMIRA [Suspect]
     Active Substance: ADALIMUMAB
     Dosage: INDUCTION
     Route: 058
     Dates: start: 20170511, end: 20170525
  5. HUMIRA [Suspect]
     Active Substance: ADALIMUMAB
     Route: 058
     Dates: start: 20170525, end: 20181127

REACTIONS (1)
  - Drug resistance [Recovered/Resolved]

NARRATIVE: CASE EVENT DATE: 20190520
